FAERS Safety Report 11768361 (Version 4)
Quarter: 2016Q1

REPORT INFORMATION
  Report Type: Report from Study
  Country: JP (occurrence: JP)
  Receive Date: 20151123
  Receipt Date: 20160324
  Transmission Date: 20160525
  Serious: Yes (Life-Threatening, Other)
  Sender: FDA-Public Use
  Company Number: JP-EISAI MEDICAL RESEARCH-EC-2015-012243

PATIENT
  Age: 65 Year
  Sex: Male
  Weight: 47 kg

DRUGS (13)
  1. LENVIMA [Suspect]
     Active Substance: LENVATINIB
     Route: 048
     Dates: start: 20151110, end: 20151117
  2. LENVIMA [Suspect]
     Active Substance: LENVATINIB
     Route: 048
     Dates: start: 20151130, end: 20151203
  3. THYRADIN [Concomitant]
     Active Substance: LEVOTHYROXINE
  4. TAKEPRON [Concomitant]
     Active Substance: LANSOPRAZOLE
  5. NOVAMIN [Concomitant]
     Active Substance: PROCHLORPERAZINE MALEATE
  6. ROPION [Concomitant]
     Active Substance: FLURBIPROFEN AXETIL
  7. LENVIMA [Suspect]
     Active Substance: LENVATINIB
     Indication: PAPILLARY THYROID CANCER
     Route: 048
     Dates: start: 20151031, end: 20151105
  8. ACECOL [Concomitant]
     Active Substance: TEMOCAPRIL HYDROCHLORIDE
  9. LULLAN [Concomitant]
     Active Substance: PEROSPIRONE HYDROCHLORIDE
  10. ATELEC [Concomitant]
     Active Substance: CILNIDIPINE
  11. CARDENALIN [Concomitant]
     Active Substance: DOXAZOSIN MESYLATE
  12. LEVOTHYROXINE SODIUM. [Concomitant]
     Active Substance: LEVOTHYROXINE SODIUM
  13. FENTANYL. [Concomitant]
     Active Substance: FENTANYL

REACTIONS (1)
  - Pneumothorax [Recovering/Resolving]

NARRATIVE: CASE EVENT DATE: 20151117
